FAERS Safety Report 9645296 (Version 2)
Quarter: 2013Q4

REPORT INFORMATION
  Report Type: Spontaneous
  Country: RU (occurrence: RU)
  Receive Date: 20131025
  Receipt Date: 20131025
  Transmission Date: 20140711
  Serious: Yes (Other)
  Sender: FDA-Public Use
  Company Number: RU-ABBVIE-13X-251-1115277-00

PATIENT
  Age: 26 Year
  Sex: Female

DRUGS (2)
  1. VALPROIC ACID [Suspect]
     Indication: PETIT MAL EPILEPSY
  2. TOPIRAMATE [Suspect]
     Indication: CONVULSION

REACTIONS (3)
  - Grand mal convulsion [Recovered/Resolved]
  - Petit mal epilepsy [Not Recovered/Not Resolved]
  - Paradoxical drug reaction [Recovered/Resolved]
